FAERS Safety Report 5467286-6 (Version None)
Quarter: 2007Q3

REPORT INFORMATION
  Report Type: 
  Country: None (occurrence: None)
  Receive Date: 20070925
  Receipt Date: 20070917
  Transmission Date: 20080115
  Serious: Yes (Death, Hospitalization)
  Sender: FDA-Public Use
  Company Number: LB-SANOFI-SYNTHELABO-A01200710388

PATIENT
  Age: 62 Year
  Sex: Female

DRUGS (4)
  1. CORVASAL [Concomitant]
     Indication: ACUTE MYOCARDIAL INFARCTION
     Dosage: UNK
     Route: 048
     Dates: start: 20070801
  2. ASPIRIN [Concomitant]
     Indication: ACUTE MYOCARDIAL INFARCTION
     Route: 048
     Dates: start: 20070801
  3. PLAVIX [Suspect]
     Indication: ARTERIOGRAM CORONARY
     Route: 048
     Dates: start: 20070801, end: 20070914
  4. PLAVIX [Suspect]
     Indication: ACUTE MYOCARDIAL INFARCTION
     Route: 048
     Dates: start: 20070801, end: 20070914

REACTIONS (1)
  - CARDIAC ARREST [None]
